FAERS Safety Report 7546340-9 (Version None)
Quarter: 2011Q2

REPORT INFORMATION
  Report Type: 
  Country: None (occurrence: None)
  Receive Date: 20110614
  Receipt Date: 20080902
  Transmission Date: 20111010
  Serious: Yes (Life-Threatening, Other)
  Sender: FDA-Public Use
  Company Number: PHHY2008NZ20243

PATIENT
  Sex: Female

DRUGS (2)
  1. CLOZAPINE [Suspect]
     Indication: SCHIZOPHRENIA
     Dates: start: 19961119
  2. CHEMOTHERAPEUTICS NOS [Concomitant]

REACTIONS (7)
  - NON-HODGKIN'S LYMPHOMA [None]
  - NEUTROPENIA [None]
  - NEOPLASM MALIGNANT [None]
  - NEUTROPHIL COUNT DECREASED [None]
  - AGRANULOCYTOSIS [None]
  - WHITE BLOOD CELL COUNT DECREASED [None]
  - ASPIRATION BONE MARROW [None]
